FAERS Safety Report 11052426 (Version 2)
Quarter: 2015Q2

REPORT INFORMATION
  Report Type: Spontaneous
  Country: US (occurrence: US)
  Receive Date: 20150421
  Receipt Date: 20150504
  Transmission Date: 20150821
  Serious: Yes (Death, Hospitalization, Other)
  Sender: FDA-Public Use
  Company Number: US-APOTEX-2015AP008246

PATIENT
  Age: 76 Year
  Sex: Male

DRUGS (14)
  1. DONEPEZIL HYDROCHLORIDE TABLETS USP [Suspect]
     Active Substance: DONEPEZIL HYDROCHLORIDE
     Dosage: 5 MG, PER DAY
  2. HALOPERIDOL. [Suspect]
     Active Substance: HALOPERIDOL
     Indication: HICCUPS
     Route: 065
  3. FUROSEMIDE. [Concomitant]
     Active Substance: FUROSEMIDE
     Indication: OEDEMA
     Dosage: AS NEEDED
     Route: 065
  4. ROPINIROLE. [Concomitant]
     Active Substance: ROPINIROLE
     Indication: PRODUCT USED FOR UNKNOWN INDICATION
     Dosage: 1 MG, Q.H.S.
     Route: 065
  5. METOCLOPRAMIDE. [Suspect]
     Active Substance: METOCLOPRAMIDE
     Indication: HICCUPS
     Route: 065
  6. QUETIAPINE FUMARATE. [Suspect]
     Active Substance: QUETIAPINE FUMARATE
     Indication: ABNORMAL BEHAVIOUR
     Route: 065
  7. BACLOFEN. [Suspect]
     Active Substance: BACLOFEN
     Indication: HICCUPS
     Route: 065
  8. DONEPEZIL HYDROCHLORIDE TABLETS USP [Suspect]
     Active Substance: DONEPEZIL HYDROCHLORIDE
     Indication: COGNITIVE DISORDER
     Dosage: 5 MG, Q.H.S.
     Route: 065
     Dates: start: 2011
  9. AMITRIPTYLINE [Concomitant]
     Active Substance: AMITRIPTYLINE
     Indication: PRODUCT USED FOR UNKNOWN INDICATION
     Dosage: 25 MG, Q.H.S.
     Route: 065
  10. FLUTICASONE PROPIONATE. [Concomitant]
     Active Substance: FLUTICASONE PROPIONATE
     Indication: PRODUCT USED FOR UNKNOWN INDICATION
     Dosage: 50-LG SPRAY IN BOTH NOSTRILS ONCE/DAY
     Route: 045
  11. DONEPEZIL HYDROCHLORIDE TABLETS USP [Suspect]
     Active Substance: DONEPEZIL HYDROCHLORIDE
     Dosage: 10 MG, PER DAY
     Route: 065
  12. OMEPRAZOLE. [Suspect]
     Active Substance: OMEPRAZOLE
     Indication: HICCUPS
     Route: 065
  13. MEMANTINE [Concomitant]
     Active Substance: MEMANTINE
     Indication: COGNITIVE DISORDER
     Dosage: 28 MG, DAILY
     Route: 065
  14. DONEPEZIL HYDROCHLORIDE TABLETS USP [Suspect]
     Active Substance: DONEPEZIL HYDROCHLORIDE
     Indication: PROPHYLAXIS
     Dosage: 15 MG, Q.H.S.
     Route: 065

REACTIONS (8)
  - Death [Fatal]
  - Acute kidney injury [Unknown]
  - Aggression [Unknown]
  - Hiccups [Unknown]
  - Off label use [Unknown]
  - Urosepsis [Unknown]
  - Impulsive behaviour [Unknown]
  - Sedation [Unknown]

NARRATIVE: CASE EVENT DATE: 201310
